FAERS Safety Report 8015430-9 (Version None)
Quarter: 2011Q4

REPORT INFORMATION
  Report Type: 
  Country: None (occurrence: None)
  Receive Date: 20111230
  Receipt Date: 20111228
  Transmission Date: 20120403
  Serious: Yes (Life-Threatening, Hospitalization)
  Sender: FDA-Public Use
  Company Number: BR-BRISTOL-MYERS SQUIBB COMPANY-16299729

PATIENT
  Age: 62 Year
  Sex: Female
  Weight: 43 kg

DRUGS (8)
  1. PEMETREXED DISODIUM [Suspect]
     Indication: NON-SMALL CELL LUNG CANCER
     Route: 042
     Dates: start: 20111205
  2. FOLIC ACID [Concomitant]
     Dates: start: 20111125
  3. CISPLATIN [Suspect]
     Indication: NON-SMALL CELL LUNG CANCER
     Route: 042
     Dates: start: 20111205
  4. DEXAMETHASONE [Concomitant]
     Dates: start: 20111204, end: 20111206
  5. OMEPRAZOLE [Concomitant]
     Dates: start: 20111101
  6. VITAMIN B-12 [Concomitant]
     Dates: start: 20111125
  7. SERTRALINE HYDROCHLORIDE [Concomitant]
     Dates: start: 20110901
  8. FLUNITRAZEPAM [Concomitant]
     Dates: start: 20110901

REACTIONS (2)
  - HAEMOPTYSIS [None]
  - THROMBOCYTOPENIA [None]
